FAERS Safety Report 7352263-0 (Version None)
Quarter: 2011Q1

REPORT INFORMATION
  Report Type: 
  Country: None (occurrence: None)
  Receive Date: 20110315
  Receipt Date: 20110307
  Transmission Date: 20110831
  Serious: Yes (Hospitalization)
  Sender: FDA-Public Use
  Company Number: US-US-EMD SERONO, INC.-7046598

PATIENT
  Sex: Female

DRUGS (2)
  1. REBIF [Suspect]
     Indication: MULTIPLE SCLEROSIS
     Dates: end: 20101201
  2. UNSPECIFIED MULTIPLE SCLEROSIS DRUGS [Concomitant]
     Indication: MULTIPLE SCLEROSIS
     Dates: end: 20101201

REACTIONS (1)
  - GASTROENTERITIS RADIATION [None]
